FAERS Safety Report 11157402 (Version 1)
Quarter: 2015Q2

REPORT INFORMATION
  Report Type: Spontaneous
  Country: FI (occurrence: FI)
  Receive Date: 20150603
  Receipt Date: 20150603
  Transmission Date: 20150821
  Serious: Yes (Disabling)
  Sender: FDA-Public Use
  Company Number: FI-AMGEN-FINSP2015052536

PATIENT
  Age: 69 Year
  Sex: Female

DRUGS (18)
  1. ESCITALOPRAM ORION [Concomitant]
     Indication: DEPRESSION
     Dosage: 10 MG, QD
     Route: 048
  2. SOMAC [Concomitant]
     Active Substance: PANTOPRAZOLE SODIUM
     Indication: REFLUX GASTRITIS
     Dosage: 40 MG, QD
     Route: 048
  3. MIRTAZAPIN ORION [Concomitant]
     Indication: DEPRESSION
     Dosage: 15 MG, QD
     Route: 048
  4. NITRO                              /00003201/ [Concomitant]
     Indication: ARTERIAL DISORDER
     Dosage: 0.5 MG, AS NECESSARY
     Route: 060
  5. PANACOD [Concomitant]
     Active Substance: ACETAMINOPHEN\CODEINE PHOSPHATE
     Indication: PAIN IN JAW
     Dosage: 1-2, AS NECESSARY
     Route: 048
  6. DIAPAM                             /00017001/ [Concomitant]
     Indication: INSOMNIA
     Dosage: 5 MG, AS NECESSARY
     Route: 048
  7. ASA-RATIOPHARM [Concomitant]
     Indication: ARTERIAL DISORDER
     Dosage: 100 MG, QD
     Route: 048
  8. ORLOC [Concomitant]
     Active Substance: BISOPROLOL FUMARATE
     Indication: HYPERTENSION
     Dosage: 5 MG,
     Route: 048
  9. TRIOBE                             /01079901/ [Concomitant]
     Indication: PROPHYLAXIS
     Dosage: UNK UNK, QD
     Route: 048
  10. VOLTAREN [Concomitant]
     Active Substance: DICLOFENAC SODIUM
     Indication: PAIN IN JAW
     Dosage: 1 DF, 1X1-3
     Route: 048
  11. CALCICHEW D3 FORTE [Concomitant]
     Active Substance: CALCIUM\CHOLECALCIFEROL
     Indication: OSTEOPOROSIS
     Dosage: 500 MG/10 MCG, BID
     Route: 048
  12. PANADOL FORTE [Concomitant]
     Indication: PAIN
     Dosage: 1 G, AS NECESSARY
     Route: 048
  13. PROLIA [Suspect]
     Active Substance: DENOSUMAB
     Indication: OSTEOPOROSIS
     Dosage: 60 MG, Q6MO
     Route: 058
     Dates: start: 20130130, end: 20150522
  14. CIRCADIN [Concomitant]
     Active Substance: MELATONIN
     Indication: INSOMNIA
     Dosage: 2 MG, QD
     Route: 048
  15. PEGORION [Concomitant]
     Indication: CONSTIPATION
     Dosage: 12 G, 1-2
     Route: 048
  16. ESTRENA [Concomitant]
     Dosage: 1 MG/G, UNK
     Route: 067
  17. KETIPINOR [Concomitant]
     Indication: ARTERIAL DISORDER
     Dosage: 25 MG, BID
     Route: 048
  18. RANIXAL [Concomitant]
     Indication: REFLUX GASTRITIS
     Dosage: 150 MG, 1-2
     Route: 048

REACTIONS (4)
  - Impaired healing [Not Recovered/Not Resolved]
  - Wound [Not Recovered/Not Resolved]
  - Tooth extraction [Not Recovered/Not Resolved]
  - Osteonecrosis of jaw [Not Recovered/Not Resolved]

NARRATIVE: CASE EVENT DATE: 201505
